FAERS Safety Report 8506274-X (Version None)
Quarter: 2012Q3

REPORT INFORMATION
  Report Type: 
  Country: None (occurrence: None)
  Receive Date: 20120712
  Receipt Date: 20120704
  Transmission Date: 20120928
  Serious: Yes (Other)
  Sender: FDA-Public Use
  Company Number: ES-ABBOTT-12P-144-0953858-00

PATIENT
  Age: 64 Year
  Sex: Male
  Weight: 93.5 kg

DRUGS (3)
  1. VALSARTAN [Concomitant]
     Indication: HYPERTENSION
     Route: 048
     Dates: start: 20110105
  2. HUMIRA [Suspect]
     Indication: PSORIASIS
     Dosage: 1 ADMINISTRATION EVERY 2-3 WEEKS
     Route: 058
     Dates: start: 20100701, end: 20120601
  3. AMLODIPINE [Concomitant]
     Indication: HYPERTENSION
     Route: 048
     Dates: start: 20110105

REACTIONS (3)
  - VIITH NERVE PARALYSIS [None]
  - LAGOPHTHALMOS [None]
  - ORAL HERPES [None]
